FAERS Safety Report 5807985-7 (Version None)
Quarter: 2008Q3

REPORT INFORMATION
  Report Type: 
  Country: None (occurrence: None)
  Receive Date: 20080708
  Receipt Date: 20080630
  Transmission Date: 20090109
  Serious: Yes (Other)
  Sender: FDA-Public Use
  Company Number: DSA_32084_2008

PATIENT
  Sex: Male

DRUGS (8)
  1. LORAZEPAM [Suspect]
     Indication: INSOMNIA
     Dosage: (1 MG QD ORAL)
     Route: 048
     Dates: start: 20080616, end: 20080618
  2. HALCION [Suspect]
     Indication: INSOMNIA
     Dosage: (1 DF QD ORAL)
     Route: 048
     Dates: start: 20080617, end: 20080618
  3. RAMIPRIL [Concomitant]
  4. ESIDRIX [Concomitant]
  5. PLAVIX [Concomitant]
  6. PAROXETINE HCL [Concomitant]
  7. ENOXAPARIN SODIUM [Concomitant]
  8. LACTULOSE [Concomitant]

REACTIONS (4)
  - BLOOD POTASSIUM DECREASED [None]
  - HALLUCINATION [None]
  - HYPERHIDROSIS [None]
  - PSYCHOMOTOR HYPERACTIVITY [None]
